FAERS Safety Report 24651155 (Version 2)
Quarter: 2024Q4

REPORT INFORMATION
  Report Type: Report from Study
  Country: JP (occurrence: JP)
  Receive Date: 20241122
  Receipt Date: 20241205
  Transmission Date: 20250115
  Serious: Yes (Congenital Anomaly)
  Sender: CSL BEHRING
  Company Number: JP-BEH-2024186035

PATIENT

DRUGS (1)
  1. HUMAN IMMUNOGLOBULIN G [Suspect]
     Active Substance: HUMAN IMMUNOGLOBULIN G
     Indication: Product used for unknown indication
     Dosage: 400 MG/KG
     Route: 064

REACTIONS (3)
  - Congenital hypoplasia of depressor angularis oris muscle [Unknown]
  - Polydactyly [Unknown]
  - Foetal exposure during pregnancy [Unknown]
